FAERS Safety Report 6114924-0 (Version None)
Quarter: 2009Q1

REPORT INFORMATION
  Report Type: 
  Country: None (occurrence: None)
  Receive Date: 20090313
  Receipt Date: 20090312
  Transmission Date: 20090719
  Serious: Yes (Death)
  Sender: FDA-Public Use
  Company Number: PHBS2009CN01035

PATIENT
  Age: 14 Year
  Sex: Male
  Weight: 33 kg

DRUGS (5)
  1. CYCLOSPORINE [Suspect]
     Indication: APLASTIC ANAEMIA
     Dosage: 100 MG/DAY
  2. METHYLSTANAZOL [Concomitant]
     Indication: APLASTIC ANAEMIA
     Dosage: 4 MG/DAY
     Route: 048
  3. PREDNISONE [Concomitant]
     Indication: APLASTIC ANAEMIA
     Dosage: 30 MG/DAY
     Route: 048
  4. FUFANG ZAOFAN WAN [Concomitant]
     Indication: APLASTIC ANAEMIA
     Dosage: 5.4 G/DAY
     Route: 048
  5. ACYCLOVIR [Concomitant]
     Dosage: 0.25 G, Q8H
     Route: 042

REACTIONS (27)
  - ABDOMINAL PAIN [None]
  - ALANINE AMINOTRANSFERASE INCREASED [None]
  - ASPARTATE AMINOTRANSFERASE INCREASED [None]
  - BLOOD BLISTER [None]
  - BLOOD CREATINE PHOSPHOKINASE INCREASED [None]
  - BLOOD CREATINE PHOSPHOKINASE MB INCREASED [None]
  - BLOOD LACTATE DEHYDROGENASE INCREASED [None]
  - DYSPNOEA [None]
  - ECCHYMOSIS [None]
  - FACE OEDEMA [None]
  - FAECES DISCOLOURED [None]
  - HAEMATURIA [None]
  - HAEMORRHAGE INTRACRANIAL [None]
  - HEADACHE [None]
  - LOSS OF CONSCIOUSNESS [None]
  - MUCOSAL DISCOLOURATION [None]
  - MYOCARDITIS [None]
  - PALLOR [None]
  - PALPITATIONS [None]
  - PHARYNGEAL OEDEMA [None]
  - PUPILS UNEQUAL [None]
  - PYREXIA [None]
  - RASH PAPULAR [None]
  - SCAB [None]
  - SKIN HAEMORRHAGE [None]
  - TACHYCARDIA [None]
  - VARICELLA [None]
